FAERS Safety Report 9232705 (Version 2)
Quarter: 2013Q2

REPORT INFORMATION
  Report Type: Spontaneous
  Country: US (occurrence: None)
  Receive Date: 20121031
  Receipt Date: 20130107
  Transmission Date: 20140414
  Serious: Yes (Other)
  Sender: FDA-Public Use
  Company Number: PHEH2012US013067

PATIENT
  Age: 67 Year
  Sex: Female
  Weight: 59 kg

DRUGS (5)
  1. GILENYA [Suspect]
     Indication: MULTIPLE SCLEROSIS
     Route: 048
     Dates: start: 20120101, end: 20120714
  2. SYNTHROID (LEVOTHYROXINE SODIUM) [Concomitant]
  3. CHLORTHALIDONE (CHLORTALIDONE) [Concomitant]
  4. RESTASIS (CICLOSPORIN) [Concomitant]
  5. PRILOSEC (OMEPRAZOLE) [Concomitant]

REACTIONS (6)
  - Blood pressure fluctuation [None]
  - Malaise [None]
  - Dizziness [None]
  - Paraesthesia [None]
  - Heart rate decreased [None]
  - Hypertension [None]
